FAERS Safety Report 11372031 (Version 1)
Quarter: 2015Q3

REPORT INFORMATION
  Report Type: Spontaneous
  Country: SA (occurrence: SA)
  Receive Date: 20150812
  Receipt Date: 20150812
  Transmission Date: 20151125
  Serious: Yes (Death, Hospitalization)
  Sender: FDA-Public Use
  Company Number: SA-BIOMARINAP-SA-2015-107084

PATIENT
  Age: 8 Year
  Sex: Male
  Weight: 18 kg

DRUGS (2)
  1. PANADOL                            /00020001/ [Concomitant]
     Indication: PRODUCT USED FOR UNKNOWN INDICATION
     Dosage: 20 MG, QW
     Route: 042
  2. NAGLAZYME [Suspect]
     Active Substance: GALSULFASE
     Indication: PRODUCT USED FOR UNKNOWN INDICATION
     Dosage: 20 MG, QW
     Route: 042
     Dates: start: 20140508

REACTIONS (5)
  - Cardiac failure [Unknown]
  - Oedema peripheral [Unknown]
  - Cyanosis [Unknown]
  - Death [Fatal]
  - Respiratory distress [Unknown]

NARRATIVE: CASE EVENT DATE: 20150809
